FAERS Safety Report 11256023 (Version 1)
Quarter: 2015Q3

REPORT INFORMATION
  Report Type: Spontaneous
  Country: US (occurrence: US)
  Receive Date: 20150709
  Receipt Date: 20150709
  Transmission Date: 20151125
  Serious: Yes (Hospitalization)
  Sender: FDA-Public Use
  Company Number: US-PFIZER INC-2015224066

PATIENT
  Age: 64 Year
  Sex: Female

DRUGS (2)
  1. MEPHOBARBITAL. [Concomitant]
     Active Substance: MEPHOBARBITAL
     Indication: SEIZURE
     Dosage: 400 MG, DAILY
     Dates: start: 1939
  2. PHENYTOIN SODIUM. [Suspect]
     Active Substance: PHENYTOIN SODIUM
     Indication: SEIZURE
     Dosage: 400 MG, DAILY
     Dates: start: 1939, end: 198009

REACTIONS (2)
  - Jaundice cholestatic [Recovered/Resolved]
  - Hepatotoxicity [Recovered/Resolved]
